FAERS Safety Report 6932047-5 (Version None)
Quarter: 2010Q3

REPORT INFORMATION
  Report Type: 
  Country: None (occurrence: None)
  Receive Date: 20100819
  Receipt Date: 20100810
  Transmission Date: 20110219
  Serious: Yes (Hospitalization)
  Sender: FDA-Public Use
  Company Number: US-ASTRAZENECA-2010SE37422

PATIENT
  Age: 86 Year
  Sex: Female

DRUGS (5)
  1. TOPROL-XL [Suspect]
     Indication: BLOOD PRESSURE
     Route: 048
  2. DIOVAN [Concomitant]
     Indication: BLOOD PRESSURE
  3. VITAMIN D-3 [Concomitant]
  4. MULTI-VITAMIN [Concomitant]
  5. ASPIRIN [Concomitant]

REACTIONS (1)
  - HYSTERECTOMY [None]
